FAERS Safety Report 8757948 (Version 1)
Quarter: 2012Q4

REPORT INFORMATION
  Report Type: 
  Country: US (occurrence: US)
  Receive Date: 20120828
  Receipt Date: 20120828
  Transmission Date: 20130627
  Serious: No
  Sender: FDA-Public Use
  Company Number: US-PFIZER INC-2012206218

PATIENT
  Age: 75 Year
  Sex: Male
  Weight: 86.62 kg

DRUGS (1)
  1. SUTENT [Suspect]
     Indication: BONE NEOPLASM MALIGNANT
     Dosage: 50 mg, UNK
     Dates: start: 201207, end: 201207

REACTIONS (1)
  - Platelet count decreased [Recovered/Resolved]
